FAERS Safety Report 8845820 (Version 1)
Quarter: 2012Q4

REPORT INFORMATION
  Report Type: 
  Country: US (occurrence: US)
  Receive Date: 20121017
  Receipt Date: 20121017
  Transmission Date: 20130627
  Serious: Yes (Hospitalization, Other)
  Sender: FDA-Public Use
  Company Number: US-ROCHE-GNE221270

PATIENT
  Age: 6 Year
  Sex: Male

DRUGS (3)
  1. NUTROPIN AQ [Suspect]
     Indication: RENAL OSTEODYSTROPHY
     Dosage: 1 UNK, qd
     Route: 058
     Dates: start: 20010920, end: 20051206
  2. ANTIHYPERTENSIVES [Concomitant]
     Indication: HYPERTENSION
     Dosage: 5 mg, bid
     Route: 048
     Dates: start: 20051215
  3. RENAGEL [Concomitant]
     Indication: PRODUCT USED FOR UNKNOWN INDICATION
     Dosage: 400 mg, tid
     Route: 048
     Dates: start: 20051215

REACTIONS (3)
  - Hypertension [Unknown]
  - Optic nerve disorder [Unknown]
  - Growth retardation [Unknown]
